FAERS Safety Report 11348993 (Version 1)
Quarter: 2015Q3

REPORT INFORMATION
  Report Type: Other
  Country: DE (occurrence: US)
  Receive Date: 20150807
  Receipt Date: 20150807
  Transmission Date: 20151125
  Serious: Yes (Other)
  Sender: FDA-Public Use
  Company Number: DE-ACTELION-A-NJ2015-122135

PATIENT
  Age: 35 Year
  Sex: Female

DRUGS (6)
  1. BUPIVACAINE [Concomitant]
     Active Substance: BUPIVACAINE
     Dosage: 0.0625 %
  2. FENTANYL. [Concomitant]
     Active Substance: FENTANYL
  3. VENTAVIS [Suspect]
     Active Substance: ILOPROST
     Indication: PULMONARY HYPERTENSION
     Route: 055
  4. LIDOCAINE. [Concomitant]
     Active Substance: LIDOCAINE
  5. NITRIC OXIDE. [Concomitant]
     Active Substance: NITRIC OXIDE
  6. TADALAFIL [Suspect]
     Active Substance: TADALAFIL
     Indication: PULMONARY HYPERTENSION
     Dosage: 40 MG, QD
     Route: 065

REACTIONS (3)
  - Induced labour [Unknown]
  - Maternal exposure during pregnancy [Unknown]
  - Pre-eclampsia [Unknown]
